FAERS Safety Report 9859384 (Version 1)
Quarter: 2014Q1

REPORT INFORMATION
  Report Type: Spontaneous
  Country: US (occurrence: US)
  Receive Date: 20140131
  Receipt Date: 20140131
  Transmission Date: 20141002
  Serious: Yes (Other)
  Sender: FDA-Public Use
  Company Number: US-TEVA-459265USA

PATIENT
  Age: 32 Year
  Sex: Female
  Weight: 70.37 kg

DRUGS (2)
  1. PARAGARD 380A [Suspect]
     Indication: CONTRACEPTION
     Route: 015
     Dates: start: 20131205
  2. BABY ASPIRIN [Concomitant]
     Indication: COAGULOPATHY
     Dosage: 81 MILLIGRAM DAILY;

REACTIONS (1)
  - Device dislocation [Not Recovered/Not Resolved]
